FAERS Safety Report 8069748-4 (Version None)
Quarter: 2012Q1

REPORT INFORMATION
  Report Type: 
  Country: None (occurrence: None)
  Receive Date: 20120119
  Receipt Date: 20120109
  Transmission Date: 20120608
  Serious: Yes (Hospitalization, Other)
  Sender: FDA-Public Use
  Company Number: 2012P1002474

PATIENT
  Age: 51 Year
  Sex: Male

DRUGS (1)
  1. LITHIUM CARBONATE [Suspect]
     Dosage: 450 MG;QD, 600 MG; HS; 300 MG; BID;

REACTIONS (7)
  - PAIN [None]
  - INCORRECT DOSE ADMINISTERED [None]
  - DEHYDRATION [None]
  - BLOOD CREATINE INCREASED [None]
  - DELIRIUM [None]
  - ENCEPHALOPATHY [None]
  - CONFUSIONAL STATE [None]
